FAERS Safety Report 14775478 (Version 5)
Quarter: 2021Q1

REPORT INFORMATION
  Report Type: Spontaneous
  Country: US (occurrence: US)
  Receive Date: 20180418
  Receipt Date: 20210223
  Transmission Date: 20210419
  Serious: Yes (Hospitalization, Other)
  Sender: FDA-Public Use
  Company Number: US-ALEXION-A201803814

PATIENT
  Sex: Female

DRUGS (1)
  1. SOLIRIS [Suspect]
     Active Substance: ECULIZUMAB
     Indication: ATYPICAL HAEMOLYTIC URAEMIC SYNDROME
     Dosage: UNK
     Route: 065

REACTIONS (18)
  - Cerebrovascular accident [Unknown]
  - Peritonitis [Unknown]
  - Nausea [Unknown]
  - Carcinoid tumour pulmonary [Unknown]
  - Urine albumin/creatinine ratio increased [Unknown]
  - Weight increased [Unknown]
  - Vomiting [Unknown]
  - Platelet count decreased [Unknown]
  - Diverticulitis [Unknown]
  - Hospitalisation [Unknown]
  - Transient ischaemic attack [Unknown]
  - Intestinal perforation [Unknown]
  - Blood creatinine increased [Unknown]
  - Oedema peripheral [Unknown]
  - Thrombosis [Unknown]
  - Tremor [Unknown]
  - Syncope [Unknown]
  - Diarrhoea [Unknown]
